FAERS Safety Report 10086670 (Version 2)
Quarter: 2014Q2

REPORT INFORMATION
  Report Type: Spontaneous
  Country: BR (occurrence: BR)
  Receive Date: 20140418
  Receipt Date: 20140610
  Transmission Date: 20141212
  Serious: Yes (Life-Threatening, Other)
  Sender: FDA-Public Use
  Company Number: BR-ABBVIE-14P-020-1227767-00

PATIENT
  Sex: Male
  Weight: 98 kg

DRUGS (9)
  1. DEPAKOTE ER [Suspect]
     Indication: BIPOLAR DISORDER
     Dosage: PATIENT BELIEVES HE CURRENTLY TAKES 1 TAB IN MORNING AND 1 AT NIGHT
  2. DEPAKOTE ER [Suspect]
  3. ALL OTHER THERAPEUTIC PRODUCTS [Suspect]
     Indication: PRODUCT USED FOR UNKNOWN INDICATION
  4. ALL OTHER THERAPEUTIC PRODUCTS [Concomitant]
     Indication: PRODUCT USED FOR UNKNOWN INDICATION
  5. RUSOVAS [Concomitant]
     Indication: BLOOD CHOLESTEROL INCREASED
  6. EXCELSIOR [Concomitant]
     Indication: PRODUCT USED FOR UNKNOWN INDICATION
  7. RIVOTRIL [Concomitant]
     Indication: PRODUCT USED FOR UNKNOWN INDICATION
  8. MENELAT [Concomitant]
     Indication: PRODUCT USED FOR UNKNOWN INDICATION
  9. DALMADORM [Concomitant]
     Indication: PRODUCT USED FOR UNKNOWN INDICATION

REACTIONS (7)
  - Compulsions [Unknown]
  - Suicide attempt [Unknown]
  - Mania [Unknown]
  - Depression [Unknown]
  - Drug abuse [Unknown]
  - Hallucination [Unknown]
  - Respiration abnormal [Unknown]
